FAERS Safety Report 24462757 (Version 1)
Quarter: 2024Q4

REPORT INFORMATION
  Report Type: Spontaneous
  Country: US (occurrence: US)
  Receive Date: 20241018
  Receipt Date: 20241018
  Transmission Date: 20250115
  Serious: Yes (Hospitalization)
  Sender: MYLAN
  Company Number: US-MYLANLABS-2024M1093211

PATIENT
  Age: 67 Year
  Sex: Female

DRUGS (16)
  1. ETOPOSIDE [Suspect]
     Active Substance: ETOPOSIDE
     Indication: Neuroendocrine carcinoma of the skin
     Dosage: UNK
     Route: 065
  2. ETOPOSIDE [Suspect]
     Active Substance: ETOPOSIDE
     Indication: Metastatic neoplasm
  3. PREDNISONE [Suspect]
     Active Substance: PREDNISONE
     Indication: Subacute inflammatory demyelinating polyneuropathy
     Dosage: 1 MILLIGRAM/KILOGRAM, TAPERED
     Route: 065
  4. PREDNISONE [Suspect]
     Active Substance: PREDNISONE
     Dosage: 50 MILLIGRAM
     Route: 065
  5. PREDNISONE [Suspect]
     Active Substance: PREDNISONE
     Dosage: 45 MILLIGRAM
     Route: 065
  6. CISPLATIN [Suspect]
     Active Substance: CISPLATIN
     Indication: Neuroendocrine carcinoma of the skin
     Dosage: UNK
     Route: 065
  7. CISPLATIN [Suspect]
     Active Substance: CISPLATIN
     Indication: Metastatic neoplasm
  8. PEMBROLIZUMAB [Suspect]
     Active Substance: PEMBROLIZUMAB
     Indication: Neuroendocrine carcinoma of the skin
     Dosage: UNK
     Route: 065
  9. PEMBROLIZUMAB [Suspect]
     Active Substance: PEMBROLIZUMAB
     Indication: Metastatic neoplasm
  10. IPILIMUMAB [Suspect]
     Active Substance: IPILIMUMAB
     Indication: Neuroendocrine carcinoma of the skin
     Dosage: UNK
     Route: 065
  11. IPILIMUMAB [Suspect]
     Active Substance: IPILIMUMAB
     Indication: Metastatic neoplasm
  12. NIVOLUMAB [Suspect]
     Active Substance: NIVOLUMAB
     Indication: Neuroendocrine carcinoma of the skin
     Dosage: UNK
     Route: 065
  13. NIVOLUMAB [Suspect]
     Active Substance: NIVOLUMAB
     Indication: Metastatic neoplasm
  14. METHYLPREDNISOLONE [Concomitant]
     Active Substance: METHYLPREDNISOLONE
     Indication: Drug therapy
     Dosage: 2 MILLIGRAM/KILOGRAM, QD
     Route: 065
  15. INFLIXIMAB [Concomitant]
     Active Substance: INFLIXIMAB
     Indication: Colitis
     Dosage: UNK
     Route: 065
  16. Immunoglobulin [Concomitant]
     Indication: Product used for unknown indication
     Dosage: 2 MILLIGRAM/KILOGRAM
     Route: 042

REACTIONS (4)
  - Rebound effect [Recovering/Resolving]
  - Subacute inflammatory demyelinating polyneuropathy [Recovered/Resolved]
  - Drug ineffective [Unknown]
  - Disease progression [Unknown]
